FAERS Safety Report 14827709 (Version 3)
Quarter: 2018Q2

REPORT INFORMATION
  Report Type: Spontaneous
  Country: BR (occurrence: BR)
  Receive Date: 20180430
  Receipt Date: 20180601
  Transmission Date: 20180711
  Serious: Yes (Life-Threatening, Other)
  Sender: FDA-Public Use
  Company Number: BR-AMGEN-BRASP2018053456

PATIENT
  Age: 35 Year
  Sex: Female
  Weight: 60 kg

DRUGS (5)
  1. VECTIBIX [Suspect]
     Active Substance: PANITUMUMAB
     Indication: RECTAL NEOPLASM
     Dosage: 370 MG, CYCLICAL (EVERY15 DAYS)
     Route: 042
     Dates: start: 20180402, end: 2018
  2. OXALIPLATIN. [Concomitant]
     Active Substance: OXALIPLATIN
     Indication: RECTAL CANCER
     Dosage: UNK UNK, CYCLICAL
  3. FLUOROURACIL. [Concomitant]
     Active Substance: FLUOROURACIL
     Indication: RECTAL CANCER
     Dosage: 674+4048MG, CYCLICAL
     Dates: start: 20170411
  4. VECTIBIX [Suspect]
     Active Substance: PANITUMUMAB
     Dosage: 370 MG, CYCLICAL (EVERY15 DAYS)
     Route: 042
     Dates: start: 2018
  5. CALCIUM FOLINATE [Concomitant]
     Active Substance: LEUCOVORIN CALCIUM
     Indication: RECTAL CANCER
     Dosage: 674 MG, CYCLICAL
     Dates: start: 20170411

REACTIONS (2)
  - Hypertension [Recovered/Resolved]
  - Drug hypersensitivity [Recovered/Resolved]

NARRATIVE: CASE EVENT DATE: 20180416
